FAERS Safety Report 23455916 (Version 1)
Quarter: 2024Q1

REPORT INFORMATION
  Report Type: Spontaneous
  Country: US (occurrence: None)
  Receive Date: 20240129
  Receipt Date: 20240129
  Transmission Date: 20240410
  Serious: Yes (Hospitalization)
  Sender: FDA-Public Use
  Company Number: None

PATIENT
  Age: 10 Year
  Sex: Male
  Weight: 31 kg

DRUGS (1)
  1. KYMRIAH [Suspect]
     Active Substance: TISAGENLECLEUCEL
     Indication: Acute lymphocytic leukaemia
     Dosage: OTHER FREQUENCY : ONCE;?
     Route: 042
     Dates: start: 20231211, end: 20231211

REACTIONS (8)
  - Lymphocyte adoptive therapy [None]
  - Disturbance in attention [None]
  - Confusional state [None]
  - Pyrexia [None]
  - Red blood cell transfusion [None]
  - Leukaemia recurrent [None]
  - Central nervous system leukaemia [None]
  - Hypotension [None]

NARRATIVE: CASE EVENT DATE: 20231212
